FAERS Safety Report 9684632 (Version 1)
Quarter: 2013Q4

REPORT INFORMATION
  Report Type: Spontaneous
  Country: US (occurrence: US)
  Receive Date: 20131112
  Receipt Date: 20131112
  Transmission Date: 20140711
  Serious: Yes (Hospitalization)
  Sender: FDA-Public Use
  Company Number: US-B.I. PHARMACEUTICALS,INC./RIDGEFIELD-2013-BI-36442BP

PATIENT
  Sex: Female

DRUGS (3)
  1. PRADAXA [Suspect]
     Indication: ATRIAL FIBRILLATION
     Route: 048
     Dates: end: 201311
  2. PRADAXA [Suspect]
     Dates: start: 201311
  3. NSAID [Concomitant]
     Indication: ARTHROPATHY
     Dates: end: 201311

REACTIONS (1)
  - Gastrointestinal haemorrhage [Unknown]
